FAERS Safety Report 7466707 (Version 2)
Quarter: 2013Q2

REPORT INFORMATION
  Report Type: Spontaneous
  Country: US (occurrence: US)
  Receive Date: 20100712
  Receipt Date: 20130510
  Transmission Date: 20140414
  Serious: Yes (Hospitalization, Other)
  Sender: FDA-Public Use
  Company Number: US-AMGEN-QUU422500

PATIENT
  Age: 64 Year
  Sex: Female

DRUGS (2)
  1. ENBREL [Suspect]
     Indication: RHEUMATOID ARTHRITIS
     Dosage: 25 MG, 2 TIMES/WK
     Dates: start: 20020101
  2. ANTIBIOTICS [Suspect]
     Dosage: UNK

REACTIONS (20)
  - Intestinal obstruction [Recovered/Resolved]
  - Haemoptysis [Unknown]
  - Pulmonary oedema [Recovered/Resolved]
  - Pleurisy [Recovered/Resolved]
  - Memory impairment [Not Recovered/Not Resolved]
  - Oxygen saturation decreased [Not Recovered/Not Resolved]
  - Pneumonia [Recovered/Resolved]
  - Chest pain [Recovered/Resolved]
  - Blood glucose increased [Not Recovered/Not Resolved]
  - Malaise [Not Recovered/Not Resolved]
  - Feeling of body temperature change [Not Recovered/Not Resolved]
  - Pain in extremity [Unknown]
  - Arthralgia [Not Recovered/Not Resolved]
  - Rash [Recovered/Resolved]
  - Cough [Not Recovered/Not Resolved]
  - Drug hypersensitivity [Recovered/Resolved]
  - Haemorrhage [Recovered/Resolved]
  - Rash pruritic [Recovered/Resolved]
  - Lung infection [Recovered/Resolved]
  - Bronchitis [Unknown]
